FAERS Safety Report 21036697 (Version 1)
Quarter: 2022Q3

REPORT INFORMATION
  Report Type: Spontaneous
  Country: PL (occurrence: PL)
  Receive Date: 20220702
  Receipt Date: 20220702
  Transmission Date: 20221026
  Serious: Yes (Hospitalization, Other)
  Sender: FDA-Public Use
  Company Number: None

PATIENT
  Age: 37 Year
  Sex: Female

DRUGS (9)
  1. ARIPIPRAZOLE [Suspect]
     Active Substance: ARIPIPRAZOLE
     Indication: Depression
     Dosage: 30 MG, DAILY
  2. PREGABALIN [Suspect]
     Active Substance: PREGABALIN
     Indication: Schizophrenia
     Dosage: 150 MILLIGRAM, DAILY
  3. OLANZAPINE [Suspect]
     Active Substance: OLANZAPINE
     Indication: Depression
     Dosage: 10 MG, PER DAY
  4. CLOMIPRAMINE [Suspect]
     Active Substance: CLOMIPRAMINE
     Indication: Depression
     Dosage: 150 MG, PER DAY
  5. DULOXETINE [Suspect]
     Active Substance: DULOXETINE
     Indication: Depression
     Dosage: 30 MG, QD
  6. CARBAMAZEPINE [Suspect]
     Active Substance: CARBAMAZEPINE
     Indication: Depression
     Dosage: 400 MG, DAILY
  7. LAMOTRIGINE [Suspect]
     Active Substance: LAMOTRIGINE
     Indication: Acute psychosis
     Dosage: 50 MG, PER DAY
  8. METHYLPREDNISOLONE [Suspect]
     Active Substance: METHYLPREDNISOLONE
     Indication: Meniere^s disease
  9. PREGABALIN [Suspect]
     Active Substance: PREGABALIN
     Indication: Depression
     Dosage: 450 MG, DAILY

REACTIONS (14)
  - Body mass index decreased [Unknown]
  - Anxiety [Unknown]
  - Therapeutic product effect incomplete [Unknown]
  - Muscle rigidity [Unknown]
  - Suicidal ideation [Recovering/Resolving]
  - Stereotypy [Unknown]
  - Withdrawal syndrome [Unknown]
  - Paralogism [Unknown]
  - Psychiatric symptom [Unknown]
  - Schizophrenia [Unknown]
  - Condition aggravated [Unknown]
  - Drug ineffective [Unknown]
  - Depression suicidal [Recovered/Resolved]
  - Restlessness [Unknown]
